FAERS Safety Report 4922053-4 (Version None)
Quarter: 2006Q1

REPORT INFORMATION
  Report Type: 
  Country: None (occurrence: None)
  Receive Date: 20060224
  Receipt Date: 20060214
  Transmission Date: 20060701
  Serious: Yes (Hospitalization)
  Sender: FDA-Public Use
  Company Number: 2006UW02505

PATIENT
  Age: 46 Year
  Sex: Female

DRUGS (4)
  1. IRESSA [Suspect]
     Indication: NON-SMALL CELL LUNG CANCER
     Route: 048
     Dates: start: 20050504, end: 20050606
  2. SENNA FRUIT [Concomitant]
     Indication: CONSTIPATION
     Route: 048
     Dates: start: 20040101
  3. LACTULOSE [Concomitant]
     Indication: CONSTIPATION
     Route: 048
     Dates: start: 20050131
  4. MORPHINE SULFATE [Concomitant]
     Indication: PAIN
     Route: 048
     Dates: start: 20050421

REACTIONS (7)
  - ABDOMINAL PAIN [None]
  - CONSTIPATION [None]
  - DISEASE PROGRESSION [None]
  - METASTASES TO ADRENALS [None]
  - METASTASES TO LIVER [None]
  - URINE ABNORMALITY [None]
  - VOMITING [None]
